FAERS Safety Report 19803291 (Version 1)
Quarter: 2021Q3

REPORT INFORMATION
  Report Type: Spontaneous
  Country: US (occurrence: US)
  Receive Date: 20210903
  Receipt Date: 20210903
  Transmission Date: 20211014
  Serious: No
  Sender: FDA-Public Use
  Company Number: None

PATIENT
  Sex: Female

DRUGS (1)
  1. KESIMPTA [Suspect]
     Active Substance: OFATUMUMAB
     Indication: MULTIPLE SCLEROSIS
     Dosage: 20MG EVERY MONT INJECTION
     Dates: start: 20210513

REACTIONS (5)
  - Throat irritation [None]
  - Urticaria [None]
  - Lip swelling [None]
  - Eye swelling [None]
  - Multiple sclerosis relapse [None]
